FAERS Safety Report 24399238 (Version 2)
Quarter: 2024Q4

REPORT INFORMATION
  Report Type: Spontaneous
  Country: DE (occurrence: DE)
  Receive Date: 20241004
  Receipt Date: 20241112
  Transmission Date: 20250114
  Serious: Yes (Other)
  Sender: BIOGEN
  Company Number: DE-BIOGEN-2024BI01285131

PATIENT
  Age: 51 Year
  Sex: Female

DRUGS (7)
  1. TYSABRI [Suspect]
     Active Substance: NATALIZUMAB
     Indication: Multiple sclerosis
     Dosage: (2X150 MG)
     Route: 050
     Dates: start: 20230914
  2. TYSABRI [Suspect]
     Active Substance: NATALIZUMAB
     Indication: Multiple sclerosis
     Dosage: (150MG X 2)
     Route: 050
     Dates: start: 201205, end: 20230808
  3. CHOLECALCIFEROL [Concomitant]
     Active Substance: CHOLECALCIFEROL
     Indication: Product used for unknown indication
     Route: 050
  4. FLUOXETINE HYDROCHLORIDE [Concomitant]
     Active Substance: FLUOXETINE HYDROCHLORIDE
     Indication: Product used for unknown indication
     Route: 050
  5. VIGIL [Concomitant]
     Indication: Product used for unknown indication
     Route: 050
  6. ACETAMINOPHEN [Concomitant]
     Active Substance: ACETAMINOPHEN
     Indication: Product used for unknown indication
     Route: 050
  7. Novalgin [Concomitant]
     Indication: Product used for unknown indication
     Route: 050

REACTIONS (4)
  - Vulval cancer stage I [Recovered/Resolved]
  - Prescribed underdose [Not Recovered/Not Resolved]
  - Hemiparesis [Unknown]
  - Ataxia [Unknown]

NARRATIVE: CASE EVENT DATE: 20240801
